FAERS Safety Report 8395656-5 (Version None)
Quarter: 2012Q2

REPORT INFORMATION
  Report Type: 
  Country: None (occurrence: None)
  Receive Date: 20120530
  Receipt Date: 20120120
  Transmission Date: 20120825
  Serious: No
  Sender: FDA-Public Use
  Company Number: US-GLAXOSMITHKLINE-A0962425A

PATIENT
  Age: 54 Year
  Sex: Female

DRUGS (2)
  1. NO CONCURRENT MEDICATION [Concomitant]
  2. VENTOLIN [Suspect]
     Indication: BRONCHITIS CHRONIC
     Dosage: 2PUFF VARIABLE DOSE
     Route: 055
     Dates: start: 20100215

REACTIONS (2)
  - DYSPNOEA [None]
  - CHEST DISCOMFORT [None]
